FAERS Safety Report 4941200-1 (Version None)
Quarter: 2006Q1

REPORT INFORMATION
  Report Type: 
  Country: None (occurrence: None)
  Receive Date: 20060308
  Receipt Date: 20060222
  Transmission Date: 20060701
  Serious: Yes (Death)
  Sender: FDA-Public Use
  Company Number: 2006027523

PATIENT
  Age: 24 Year
  Sex: Female

DRUGS (3)
  1. METHYLPREDNISOLONE SODIUM SUCCINATE [Suspect]
     Indication: ILL-DEFINED DISORDER
     Dosage: UNK (250 MG, INTERVAL: EVERY 2 WEEKS), INTRAVENOUS
     Route: 042
  2. CYCLOPHOSPHAMIDE [Suspect]
     Indication: SYSTEMIC LUPUS ERYTHEMATOSUS
     Dosage: UNK (750 MG, INTERVAL: EVERY 2 WEEKS), INTRAVENOUS
     Route: 042
  3. RITUXIMAB (RITUXIMAB) [Suspect]
     Indication: ILL-DEFINED DISORDER
     Dosage: UNKNOWN
     Route: 065

REACTIONS (2)
  - B-LYMPHOCYTE COUNT DECREASED [None]
  - CARDITIS [None]
